FAERS Safety Report 10040930 (Version 1)
Quarter: 2014Q1

REPORT INFORMATION
  Report Type: Spontaneous
  Country: US (occurrence: None)
  Receive Date: 20140326
  Receipt Date: 20140326
  Transmission Date: 20141002
  Serious: Yes (Other)
  Sender: FDA-Public Use
  Company Number: None

PATIENT
  Age: 38 Year
  Sex: Male
  Weight: 97.52 kg

DRUGS (1)
  1. NIGHT BULLETT [Suspect]
     Dosage: 2 PILLS ONCE DAILY TAKEN BY MOUTH
     Route: 048
     Dates: start: 20140323, end: 20140323

REACTIONS (5)
  - Nervousness [None]
  - Tremor [None]
  - Nausea [None]
  - Mental impairment [None]
  - Dizziness [None]
